FAERS Safety Report 17745861 (Version 1)
Quarter: 2020Q2

REPORT INFORMATION
  Report Type: Spontaneous
  Country: US (occurrence: US)
  Receive Date: 20200505
  Receipt Date: 20200505
  Transmission Date: 20200714
  Serious: No
  Sender: FDA-Public Use
  Company Number: US-SA-2020SA110952

PATIENT
  Age: 20 Year
  Sex: Male

DRUGS (1)
  1. DUPIXENT [Suspect]
     Active Substance: DUPILUMAB

REACTIONS (5)
  - Wheezing [Unknown]
  - Hyperventilation [Unknown]
  - Dyspnoea [Unknown]
  - Feeling hot [Recovered/Resolved]
  - Chills [Recovered/Resolved]
